FAERS Safety Report 8801478 (Version 2)
Quarter: 2013Q1

REPORT INFORMATION
  Report Type: Spontaneous
  Country: US (occurrence: US)
  Receive Date: 20120921
  Receipt Date: 20130327
  Transmission Date: 20140127
  Serious: Yes (Hospitalization)
  Sender: FDA-Public Use
  Company Number: US-BAYER-2012-098102

PATIENT
  Age: 36 Year
  Sex: Female

DRUGS (10)
  1. YAZ [Suspect]
  2. YASMIN [Suspect]
  3. OCELLA [Suspect]
  4. LORAZEPAM [Concomitant]
  5. TOPIRAMATE [Concomitant]
  6. METFORMIN [Concomitant]
  7. PROMETHAZINE [Concomitant]
  8. TRAZODONE [Concomitant]
  9. LEVOTHYROXINE [Concomitant]
  10. FLUOXETINE [Concomitant]

REACTIONS (2)
  - Injury [None]
  - Pulmonary embolism [Recovered/Resolved]
